FAERS Safety Report 21886020 (Version 1)
Quarter: 2023Q1

REPORT INFORMATION
  Report Type: Spontaneous
  Country: US (occurrence: None)
  Receive Date: 20230118
  Receipt Date: 20230118
  Transmission Date: 20230417
  Serious: Yes (Life-Threatening, Hospitalization)
  Sender: FDA-Public Use
  Company Number: None

PATIENT
  Age: 27 Year
  Sex: Female
  Weight: 54 kg

DRUGS (8)
  1. VENLAFAXINE HYDROCHLORIDE [Suspect]
     Active Substance: VENLAFAXINE HYDROCHLORIDE
     Indication: Major depression
     Dosage: OTHER QUANTITY : 1 CAPSULE(S);?
     Route: 048
     Dates: start: 20221209, end: 20230101
  2. CELEXA [Concomitant]
     Active Substance: CITALOPRAM HYDROBROMIDE
  3. WELLBUTRIN [Concomitant]
     Active Substance: BUPROPION HYDROCHLORIDE
  4. spironolactone 25mg 2x a day [Concomitant]
  5. adderall 30mg 2x a day [Concomitant]
  6. ativan 1mg 3x a day [Concomitant]
  7. VITAMIN D [Concomitant]
     Active Substance: VITAMIN D NOS
  8. Nutrafol and minoxidil topical solution for hair loss [Concomitant]

REACTIONS (4)
  - Suicidal ideation [None]
  - Homicidal ideation [None]
  - Feeling of despair [None]
  - Drug ineffective [None]

NARRATIVE: CASE EVENT DATE: 20221231
